FAERS Safety Report 9042635 (Version 1)
Quarter: 2013Q1

REPORT INFORMATION
  Report Type: Report from Study
  Country: US (occurrence: US)
  Receive Date: 20130129
  Receipt Date: 20130129
  Transmission Date: 20140127
  Serious: No
  Sender: FDA-Public Use
  Company Number: US-ABBOTT-12P-163-0905325-00

PATIENT
  Age: 45 Year
  Sex: Female
  Weight: 97.61 kg

DRUGS (7)
  1. HUMIRA 40 MG/0.8 ML PEN [Suspect]
     Indication: RHEUMATOID ARTHRITIS
     Route: 058
     Dates: start: 20120116
  2. METHOTREXATE [Concomitant]
     Indication: RHEUMATOID ARTHRITIS
  3. FOLIC ACID [Concomitant]
     Indication: ADVERSE DRUG REACTION
  4. PERCOCET [Concomitant]
     Indication: PAIN
  5. PROAIR [Concomitant]
     Indication: LUNG DISORDER
  6. LEXAPRO [Concomitant]
     Indication: ANXIETY
  7. LORAZEPAM [Concomitant]
     Indication: ANXIETY

REACTIONS (2)
  - Headache [Not Recovered/Not Resolved]
  - Nausea [Recovered/Resolved]
